FAERS Safety Report 7460853-X (Version None)
Quarter: 2011Q2

REPORT INFORMATION
  Report Type: 
  Country: None (occurrence: None)
  Receive Date: 20110505
  Receipt Date: 20110425
  Transmission Date: 20111010
  Serious: Yes (Death, Hospitalization, Other)
  Sender: FDA-Public Use
  Company Number: US-CELGENEUS-163-21880-10081592

PATIENT
  Sex: Female
  Weight: 44.492 kg

DRUGS (34)
  1. OXYCODONE [Concomitant]
     Indication: PAIN
     Dosage: 5 MILLIGRAM
     Route: 065
  2. MOXIFLOXACIN [Concomitant]
     Route: 065
  3. MIRALAX [Concomitant]
     Indication: CONSTIPATION
     Route: 065
  4. GABAPENTIN [Concomitant]
     Dosage: 1 DOSAGE FORMS
     Route: 065
  5. VITAMIN D [Concomitant]
     Route: 065
  6. POTASSIUM [Concomitant]
     Route: 048
     Dates: start: 20101020, end: 20101120
  7. COMBIVENT [Concomitant]
     Dosage: 2 PUFF
     Route: 055
  8. ALBUTEROL [Concomitant]
     Route: 055
  9. OXYGEN [Concomitant]
     Route: 065
  10. PREDNSIONE [Concomitant]
     Dosage: 40-10MG
     Route: 065
  11. REVLIMID [Suspect]
     Indication: MULTIPLE MYELOMA
     Dosage: 10 MILLIGRAM
     Route: 048
     Dates: start: 20100801
  12. FORADIL [Concomitant]
     Dosage: 2 PUFF
     Route: 055
  13. AREDIA [Concomitant]
     Route: 065
  14. FLUIDS [Concomitant]
     Route: 051
  15. DECADRON [Concomitant]
     Indication: MULTIPLE MYELOMA
     Dosage: 40 MILLIGRAM
     Route: 065
  16. MULTI-VITAMINS [Concomitant]
     Route: 065
  17. FLEXERIL [Concomitant]
     Indication: MUSCLE SPASMS
     Route: 065
  18. IMODIUM MULTI-SYMPTOM RELIEF [Concomitant]
     Route: 065
  19. PROTAMINE SULFATE [Concomitant]
     Indication: MULTIPLE MYELOMA
     Dosage: 10 MILLIGRAM
     Route: 065
  20. FENTANYL [Concomitant]
     Indication: PAIN
     Dosage: 50 MICROGRAM
     Route: 062
     Dates: start: 20090101
  21. K-DUR [Concomitant]
     Route: 048
     Dates: start: 20101020, end: 20101120
  22. ASPIRIN [Concomitant]
     Route: 065
  23. CALCIUM CARBONATE [Concomitant]
     Route: 065
  24. TRAZODONE HCL [Concomitant]
     Route: 065
  25. FLAGYL [Concomitant]
     Dosage: 250 MILLIGRAM
     Route: 065
  26. NICOTINE [Concomitant]
     Route: 062
  27. COLACE [Concomitant]
     Route: 062
  28. VANCOMYCIN [Concomitant]
     Route: 065
  29. IMIPRAMINE [Concomitant]
     Dosage: 25 MILLIGRAM
     Route: 065
  30. LASIX [Concomitant]
     Route: 048
     Dates: start: 20101020, end: 20101120
  31. OMEPRAZOLE [Concomitant]
     Route: 065
  32. STOOL SOFTENERS [Concomitant]
     Indication: CONSTIPATION
     Route: 065
  33. REVLIMID [Suspect]
     Dosage: 10 MILLIGRAM
     Route: 048
     Dates: start: 20101118, end: 20110101
  34. LOVASTATIN [Concomitant]
     Indication: BLOOD PRESSURE
     Dosage: 20 MILLIGRAM
     Route: 065

REACTIONS (11)
  - BLOOD CREATININE INCREASED [None]
  - CHRONIC OBSTRUCTIVE PULMONARY DISEASE [None]
  - ANAEMIA [None]
  - HYPERCALCAEMIA [None]
  - CARDIAC FAILURE CONGESTIVE [None]
  - MULTIPLE MYELOMA [None]
  - GASTROOESOPHAGEAL REFLUX DISEASE [None]
  - HYPERLIPIDAEMIA [None]
  - RENAL FUNCTION TEST ABNORMAL [None]
  - HYPERTENSION [None]
  - LEUKOPENIA [None]
